FAERS Safety Report 4598802-4 (Version None)
Quarter: 2005Q1

REPORT INFORMATION
  Report Type: 
  Country: None (occurrence: None)
  Receive Date: 20050301
  Receipt Date: 20050301
  Transmission Date: 20050727
  Serious: Yes (Disabling, Other)
  Sender: FDA-Public Use
  Company Number: None

PATIENT
  Age: 50 Year
  Sex: Female
  Weight: 52.1637 kg

DRUGS (2)
  1. TAPAZOLE [Suspect]
     Indication: BASEDOW'S DISEASE
     Dosage: 5 MG X2 ORAL
     Route: 048
     Dates: start: 20041101, end: 20050225
  2. TAPAZOLE [Suspect]
     Indication: HYPERTHYROIDISM
     Dosage: 5 MG X2 ORAL
     Route: 048
     Dates: start: 20041101, end: 20050225

REACTIONS (4)
  - FATIGUE [None]
  - HYPOAESTHESIA [None]
  - MIGRAINE [None]
  - PARAESTHESIA [None]
